FAERS Safety Report 6733567-9 (Version None)
Quarter: 2010Q2

REPORT INFORMATION
  Report Type: 
  Country: None (occurrence: None)
  Receive Date: 20100520
  Receipt Date: 20100316
  Transmission Date: 20101027
  Serious: Yes (Other)
  Sender: FDA-Public Use
  Company Number: LY-PFIZER INC-2010050898

PATIENT
  Age: 76 Year
  Sex: Male

DRUGS (1)
  1. SUNITINIB MALATE [Suspect]
     Indication: RENAL CANCER
     Dosage: 50 MG, 1X/DAY
     Route: 048
     Dates: start: 20090201, end: 20090601

REACTIONS (6)
  - ASTHENIA [None]
  - DIARRHOEA [None]
  - FISTULA [None]
  - INFECTION [None]
  - NEUROPATHY PERIPHERAL [None]
  - WOUND [None]
